FAERS Safety Report 5189670-0 (Version None)
Quarter: 2006Q4

REPORT INFORMATION
  Report Type: 
  Country: None (occurrence: None)
  Receive Date: 20061221
  Receipt Date: 20051209
  Transmission Date: 20070319
  Serious: No
  Sender: FDA-Public Use
  Company Number: US-AMGEN-US160866

PATIENT
  Sex: Male
  Weight: 93.5 kg

DRUGS (7)
  1. ENBREL [Suspect]
     Indication: PSORIATIC ARTHROPATHY
     Route: 065
     Dates: start: 20030201
  2. NEXIUM [Concomitant]
     Route: 065
  3. ULTRAM [Concomitant]
     Route: 065
  4. AMBIEN [Concomitant]
     Route: 065
  5. ZOLOFT [Concomitant]
     Route: 065
  6. ISONIAZID [Concomitant]
     Route: 065
  7. VITAMIN B6 [Concomitant]
     Route: 065
     Dates: start: 20050701

REACTIONS (1)
  - INJECTION SITE IRRITATION [None]
